FAERS Safety Report 25648034 (Version 2)
Quarter: 2025Q3

REPORT INFORMATION
  Report Type: Spontaneous
  Country: US (occurrence: US)
  Receive Date: 20250806
  Receipt Date: 20250816
  Transmission Date: 20251021
  Serious: Yes (Other)
  Sender: AUROBINDO
  Company Number: US-MLMSERVICE-20250718-PI583345-00095-1

PATIENT
  Age: 41 Year
  Sex: Female

DRUGS (1)
  1. HYDROXYCHLOROQUINE [Suspect]
     Active Substance: HYDROXYCHLOROQUINE
     Indication: Systemic lupus erythematosus
     Dosage: 400 MILLIGRAM, ONCE A DAY (THE DAILY DOSE AT INITIAL OPHTHALMIC PRESENTATION WAS 7.00 MG/KG/ DAY (CU
     Route: 065
     Dates: end: 2017

REACTIONS (4)
  - Visual field defect [Unknown]
  - Retinal degeneration [Unknown]
  - Prescribed overdose [Unknown]
  - Toxicity to various agents [Unknown]
